FAERS Safety Report 25449626 (Version 2)
Quarter: 2025Q3

REPORT INFORMATION
  Report Type: Spontaneous
  Country: US (occurrence: US)
  Receive Date: 20250618
  Receipt Date: 20250810
  Transmission Date: 20251020
  Serious: No
  Sender: LUPIN
  Company Number: US-LUPIN PHARMACEUTICALS INC.-2025-04971

PATIENT

DRUGS (1)
  1. TEMAZEPAM [Suspect]
     Active Substance: TEMAZEPAM
     Indication: Insomnia
     Route: 065

REACTIONS (6)
  - Wrong technique in product usage process [Unknown]
  - Product taste abnormal [Unknown]
  - Product dispensing error [Unknown]
  - Product container seal issue [Unknown]
  - Manufacturing materials issue [Unknown]
  - No adverse event [Unknown]
